FAERS Safety Report 23891472 (Version 2)
Quarter: 2024Q2

REPORT INFORMATION
  Report Type: Other
  Country: US (occurrence: None)
  Receive Date: 20240523
  Receipt Date: 20240603
  Transmission Date: 20240716
  Serious: Yes (Other)
  Sender: FDA-Public Use
  Company Number: US-ROCHE-3568226

PATIENT
  Age: 42 Year
  Sex: Female

DRUGS (1)
  1. OCREVUS [Suspect]
     Active Substance: OCRELIZUMAB
     Indication: Multiple sclerosis relapse
     Dosage: DATE OF TREATMENT = 14/APR/2023, 06/NOV/2023?ANTICIPATED DATE OF TREATMENT REPORTED ON 18/FEB/2022.
     Route: 042
     Dates: start: 20220204

REACTIONS (1)
  - Urinary tract infection [Recovered/Resolved]
